FAERS Safety Report 6639672-X (Version None)
Quarter: 2010Q1

REPORT INFORMATION
  Report Type: 
  Country: None (occurrence: None)
  Receive Date: 20100315
  Receipt Date: 20100302
  Transmission Date: 20100710
  Serious: Yes (Other)
  Sender: FDA-Public Use
  Company Number: 230396J10BRA

PATIENT
  Age: 37 Year
  Sex: Female

DRUGS (3)
  1. REBIF [Suspect]
     Indication: RELAPSING-REMITTING MULTIPLE SCLEROSIS
     Dosage: 22 MCG, 3 IN 1 WEEKS, 22 MCG, 3 IN 1 WEEKS
     Dates: start: 20060123, end: 20060508
  2. REBIF [Suspect]
     Indication: RELAPSING-REMITTING MULTIPLE SCLEROSIS
     Dosage: 22 MCG, 3 IN 1 WEEKS, 22 MCG, 3 IN 1 WEEKS
     Dates: start: 20060508, end: 20090901
  3. REBIF [Suspect]
     Indication: RELAPSING-REMITTING MULTIPLE SCLEROSIS
     Dosage: 22 MCG, 3 IN 1 WEEKS, 22 MCG, 3 IN 1 WEEKS
     Dates: start: 20090901

REACTIONS (4)
  - ASTHENIA [None]
  - NAUSEA [None]
  - OPTIC NEURITIS [None]
  - SOMNOLENCE [None]
